FAERS Safety Report 24626938 (Version 1)
Quarter: 2024Q4

REPORT INFORMATION
  Report Type: Spontaneous
  Country: US (occurrence: US)
  Receive Date: 20241115
  Receipt Date: 20241115
  Transmission Date: 20250115
  Serious: No
  Sender: NOVO NORDISK
  Company Number: US-NOVOPROD-1275091

PATIENT
  Age: 80 Year
  Sex: Male

DRUGS (1)
  1. NOVOLOG [Suspect]
     Active Substance: INSULIN ASPART
     Indication: Type 2 diabetes mellitus
     Dosage: PRN
     Route: 058
     Dates: start: 2015

REACTIONS (1)
  - Amnesia [Unknown]

NARRATIVE: CASE EVENT DATE: 20230101
